FAERS Safety Report 13632033 (Version 1)
Quarter: 2017Q2

REPORT INFORMATION
  Report Type: Spontaneous
  Country: US (occurrence: US)
  Receive Date: 20170531
  Receipt Date: 20170531
  Transmission Date: 20170830
  Serious: No
  Sender: FDA-Public Use
  Company Number: US-ASTELLAS-1434773

PATIENT
  Sex: Female
  Weight: 59.47 kg

DRUGS (5)
  1. TARCEVA [Suspect]
     Active Substance: ERLOTINIB HYDROCHLORIDE
     Indication: NON-SMALL CELL LUNG CANCER
     Route: 048
     Dates: start: 20140621
  2. LASIX [Concomitant]
     Active Substance: FUROSEMIDE
     Route: 048
  3. WARFARIN SODIUM. [Concomitant]
     Active Substance: WARFARIN SODIUM
  4. METOPROLOL TARTRATE. [Concomitant]
     Active Substance: METOPROLOL TARTRATE
  5. COUMADIN [Concomitant]
     Active Substance: WARFARIN SODIUM
     Route: 048

REACTIONS (14)
  - Dry eye [Unknown]
  - Oral discomfort [Not Recovered/Not Resolved]
  - Weight decreased [Not Recovered/Not Resolved]
  - Amnesia [Unknown]
  - Eye pain [Unknown]
  - Dry skin [Unknown]
  - Oral pain [Unknown]
  - Alopecia [Unknown]
  - International normalised ratio increased [Recovering/Resolving]
  - Rash [Unknown]
  - Lip pain [Not Recovered/Not Resolved]
  - Dysphonia [Unknown]
  - Dysgeusia [Unknown]
  - Decreased appetite [Unknown]
